FAERS Safety Report 5718697-2 (Version None)
Quarter: 2008Q2

REPORT INFORMATION
  Report Type: 
  Country: None (occurrence: None)
  Receive Date: 20080423
  Receipt Date: 20080407
  Transmission Date: 20081010
  Serious: Yes (Hospitalization)
  Sender: FDA-Public Use
  Company Number: S07-FRA-05433-01

PATIENT
  Age: 80 Year
  Sex: Female
  Weight: 90 kg

DRUGS (2)
  1. MEMANTINE HCL [Suspect]
     Indication: DEMENTIA ALZHEIMER'S TYPE
     Dosage: 10 MG QD PO
     Route: 048
     Dates: start: 20070701
  2. ANTIHYPERTENSIVE [Concomitant]

REACTIONS (2)
  - ALCOHOL POISONING [None]
  - PANCREATITIS ACUTE [None]
